FAERS Safety Report 10990576 (Version 1)
Quarter: 2015Q1

REPORT INFORMATION
  Report Type: Spontaneous
  Country: BG (occurrence: None)
  Receive Date: 20150325
  Receipt Date: 20150325
  Transmission Date: 20150721
  Serious: Yes (Other)
  Sender: FDA-Public Use
  Company Number: 2014GMK012815

PATIENT
  Age: 31 Year
  Sex: Female

DRUGS (1)
  1. FLUCONAZOLE (FLUCONAZOLE) [Suspect]
     Active Substance: FLUCONAZOLE
     Indication: VULVOVAGINAL CANDIDIASIS
     Route: 048

REACTIONS (1)
  - Drug eruption [None]
